FAERS Safety Report 6538713-8 (Version None)
Quarter: 2010Q1

REPORT INFORMATION
  Report Type: 
  Country: None (occurrence: None)
  Receive Date: 20100113
  Receipt Date: 20100113
  Transmission Date: 20100710
  Serious: Yes (Life-Threatening, Hospitalization)
  Sender: FDA-Public Use
  Company Number: None

PATIENT
  Age: 20 Year
  Sex: Female

DRUGS (1)
  1. PROPYLTHIOURACIL (FTU) [Suspect]
     Indication: HYPERTHYROIDISM
     Dosage: ORAL 047 FEW MONTHS
     Route: 048

REACTIONS (8)
  - ABDOMINAL DISTENSION [None]
  - ASCITES [None]
  - COAGULOPATHY [None]
  - ENCEPHALOPATHY [None]
  - HAEMATOCHEZIA [None]
  - JAUNDICE [None]
  - LIVER TRANSPLANT [None]
  - MALAISE [None]
